FAERS Safety Report 6880593-5 (Version None)
Quarter: 2010Q3

REPORT INFORMATION
  Report Type: 
  Country: None (occurrence: None)
  Receive Date: 20100727
  Receipt Date: 20091012
  Transmission Date: 20110219
  Serious: No
  Sender: FDA-Public Use
  Company Number: A0811405A

PATIENT
  Age: 47 Year
  Sex: Male

DRUGS (2)
  1. ZANTAC [Suspect]
     Indication: PROPHYLAXIS
     Route: 048
     Dates: start: 20070501, end: 20071201
  2. NO CONCURRENT MEDICATION [Concomitant]

REACTIONS (2)
  - GYNAECOMASTIA [None]
  - PRURITUS [None]
